FAERS Safety Report 26085036 (Version 1)
Quarter: 2025Q4

REPORT INFORMATION
  Report Type: Spontaneous
  Country: EU (occurrence: EU)
  Receive Date: 20251125
  Receipt Date: 20251125
  Transmission Date: 20260118
  Serious: Yes (Other)
  Sender: JOHNSON AND JOHNSON
  Company Number: None

PATIENT
  Age: 58 Year
  Sex: Male

DRUGS (7)
  1. INFLIXIMAB [Suspect]
     Active Substance: INFLIXIMAB
     Indication: Product used for unknown indication
     Dosage: STRENGTH: UNKNOWN. ?DOSAGE: UNKNOWN.
     Route: 041
     Dates: start: 2005, end: 20190311
  2. ADALIMUMAB [Suspect]
     Active Substance: ADALIMUMAB
     Indication: Product used for unknown indication
     Dosage: STRENGTH: UNKNOWN.?DOSAGE: UNKNOWN.
     Route: 065
     Dates: start: 20211012, end: 20221105
  3. TOCILIZUMAB [Suspect]
     Active Substance: TOCILIZUMAB
     Indication: Rheumatoid arthritis
     Route: 065
     Dates: start: 20241202, end: 20250326
  4. COSENTYX [Suspect]
     Active Substance: SECUKINUMAB
     Indication: Psoriatic arthropathy
     Route: 065
     Dates: start: 20240513, end: 20241029
  5. XGEVA [Suspect]
     Active Substance: DENOSUMAB
     Indication: Benign connective tissue neoplasm
     Route: 058
     Dates: start: 201712, end: 2025
  6. METHOTREXATE [Suspect]
     Active Substance: METHOTREXATE
     Indication: Product used for unknown indication
     Dosage: STRENGTH: UNKNOWN.?DOSAGE: UNKNOWN.
     Route: 048
     Dates: start: 2005, end: 2009
  7. METHOTREXATE [Suspect]
     Active Substance: METHOTREXATE
     Indication: Arthritis
     Route: 058
     Dates: start: 20230807, end: 20240122

REACTIONS (1)
  - Osteonecrosis of jaw [Not Recovered/Not Resolved]

NARRATIVE: CASE EVENT DATE: 20250901
